FAERS Safety Report 6934337-9 (Version None)
Quarter: 2010Q3

REPORT INFORMATION
  Report Type: 
  Country: None (occurrence: None)
  Receive Date: 20100820
  Receipt Date: 20100816
  Transmission Date: 20110219
  Serious: Yes (Other)
  Sender: FDA-Public Use
  Company Number: A0874755A

PATIENT
  Age: 46 Year
  Sex: Female
  Weight: 58.2 kg

DRUGS (15)
  1. WELLBUTRIN [Suspect]
     Indication: PRODUCT USED FOR UNKNOWN INDICATION
     Route: 065
  2. ZOLOFT [Suspect]
     Indication: DEPRESSION
     Dosage: 50MG TWICE PER DAY
     Route: 048
     Dates: start: 19920101, end: 19920101
  3. ZOLOFT [Suspect]
     Indication: MENOPAUSE
     Dosage: 50MG PER DAY
     Route: 048
     Dates: start: 19970101, end: 19970101
  4. ZOLOFT [Suspect]
     Dosage: 100MG PER DAY
     Route: 048
     Dates: start: 19970101, end: 19970101
  5. CELEXA [Suspect]
     Indication: DEPRESSION
     Route: 065
  6. REBIF [Suspect]
     Indication: PRODUCT USED FOR UNKNOWN INDICATION
     Route: 065
  7. EFFEXOR [Suspect]
     Indication: PRODUCT USED FOR UNKNOWN INDICATION
     Route: 065
  8. CYMBALTA [Suspect]
     Indication: PRODUCT USED FOR UNKNOWN INDICATION
     Route: 065
  9. MONTELUKAST SODIUM [Suspect]
     Indication: PRODUCT USED FOR UNKNOWN INDICATION
     Route: 065
  10. LIPITOR [Concomitant]
     Indication: BLOOD CHOLESTEROL INCREASED
     Dosage: 10MG PER DAY
  11. NEURONTIN [Concomitant]
     Dosage: 600MG FOUR TIMES PER DAY
  12. WELLBUTRIN XL [Concomitant]
  13. PROVIGIL [Concomitant]
     Dosage: 100MG TWICE PER DAY
  14. KLONOPIN [Concomitant]
     Dosage: .5MG FIVE TIMES PER DAY
  15. PERCOCET [Concomitant]
     Dosage: 1TAB FOUR TIMES PER DAY

REACTIONS (16)
  - ABDOMINAL DISCOMFORT [None]
  - CARDIAC ARREST [None]
  - DEPRESSED MOOD [None]
  - DRUG HYPERSENSITIVITY [None]
  - DRUG INEFFECTIVE [None]
  - HYPERHIDROSIS [None]
  - HYPERSENSITIVITY [None]
  - HYPERTENSION [None]
  - MOVEMENT DISORDER [None]
  - MUSCLE SPASMS [None]
  - MUSCULOSKELETAL DISCOMFORT [None]
  - MUSCULOSKELETAL PAIN [None]
  - NAUSEA [None]
  - PAIN [None]
  - PALPITATIONS [None]
  - PRURITUS [None]
